FAERS Safety Report 14468704 (Version 1)
Quarter: 2018Q1

REPORT INFORMATION
  Report Type: Spontaneous
  Country: US (occurrence: US)
  Receive Date: 20180131
  Receipt Date: 20180131
  Transmission Date: 20180509
  Serious: No
  Sender: FDA-Public Use
  Company Number: US-ACORDA-ACO_138534_2017

PATIENT
  Sex: Female

DRUGS (5)
  1. TECFIDERA [Suspect]
     Active Substance: DIMETHYL FUMARATE
     Dosage: 240 MG, BID
     Route: 048
  2. BETASERON [Suspect]
     Active Substance: INTERFERON BETA-1B
     Indication: MULTIPLE SCLEROSIS
     Dosage: UNK
     Route: 065
  3. TECFIDERA [Suspect]
     Active Substance: DIMETHYL FUMARATE
     Indication: MULTIPLE SCLEROSIS
     Dosage: 120 MG, BID
     Route: 048
  4. AMPYRA [Suspect]
     Active Substance: DALFAMPRIDINE
     Indication: GAIT DISTURBANCE
     Dosage: 10 MG, BID
     Route: 048
     Dates: start: 201606
  5. GILENYA [Suspect]
     Active Substance: FINGOLIMOD HYDROCHLORIDE
     Indication: MULTIPLE SCLEROSIS
     Dosage: UNK
     Route: 065

REACTIONS (15)
  - Chest pain [Unknown]
  - Dyspnoea exertional [Unknown]
  - Nausea [Unknown]
  - Photophobia [Unknown]
  - Arthralgia [Unknown]
  - Hypoxia [Unknown]
  - Bronchitis chronic [Unknown]
  - Urticaria [Unknown]
  - Hypertension [Unknown]
  - Ligament rupture [Unknown]
  - Hemiparesis [Unknown]
  - Lymphocyte count abnormal [Unknown]
  - Grip strength decreased [Unknown]
  - Headache [Unknown]
  - Musculoskeletal chest pain [Unknown]
